FAERS Safety Report 7359571-8 (Version None)
Quarter: 2011Q1

REPORT INFORMATION
  Report Type: 
  Country: None (occurrence: None)
  Receive Date: 20110317
  Receipt Date: 20100311
  Transmission Date: 20110831
  Serious: Yes (Other)
  Sender: FDA-Public Use
  Company Number: US-PFIZER INC-2010031762

PATIENT
  Sex: Male

DRUGS (4)
  1. AMLODIPINE BESYLATE [Suspect]
  2. LISINOPRIL [Suspect]
  3. NEXIUM [Suspect]
  4. LIPITOR [Suspect]

REACTIONS (4)
  - MUSCULAR WEAKNESS [None]
  - CHEST PAIN [None]
  - PAIN IN EXTREMITY [None]
  - TREMOR [None]
